FAERS Safety Report 5741116-7 (Version None)
Quarter: 2008Q2

REPORT INFORMATION
  Report Type: 
  Country: None (occurrence: None)
  Receive Date: 20080516
  Receipt Date: 20080509
  Transmission Date: 20081010
  Serious: Yes (Other)
  Sender: FDA-Public Use
  Company Number: AU-PFIZER INC-2008040122

PATIENT
  Sex: Male

DRUGS (3)
  1. CHANTIX [Suspect]
     Indication: SMOKING CESSATION THERAPY
     Dates: start: 20080423, end: 20080506
  2. PROPECIA [Concomitant]
  3. VITAMIN CAP [Concomitant]

REACTIONS (11)
  - ANXIETY [None]
  - CHEST DISCOMFORT [None]
  - DISSOCIATION [None]
  - DYSGEUSIA [None]
  - FEAR [None]
  - FEELING OF DESPAIR [None]
  - MALAISE [None]
  - NAUSEA [None]
  - PALPITATIONS [None]
  - PANIC ATTACK [None]
  - PAROSMIA [None]
